FAERS Safety Report 17169491 (Version 4)
Quarter: 2020Q1

REPORT INFORMATION
  Report Type: Spontaneous
  Country: US (occurrence: US)
  Receive Date: 20191218
  Receipt Date: 20200228
  Transmission Date: 20200409
  Serious: Yes (Hospitalization)
  Sender: FDA-Public Use
  Company Number: US-ACTELION-A-NJ2019-199374

PATIENT
  Age: 2 Year
  Sex: Male

DRUGS (10)
  1. TRACLEER [Suspect]
     Active Substance: BOSENTAN
     Dosage: 16 MG, BID
     Route: 048
  2. OXYGEN. [Concomitant]
     Active Substance: OXYGEN
  3. GABAPENTIN. [Concomitant]
     Active Substance: GABAPENTIN
     Dosage: 0.8 ML, BID
     Route: 048
  4. TRACLEER [Suspect]
     Active Substance: BOSENTAN
     Indication: PULMONARY ARTERIAL HYPERTENSION
     Dosage: 16 MG, QAM
     Route: 048
  5. ASPIRIN. [Concomitant]
     Active Substance: ASPIRIN
     Dosage: 81 MG, QD
     Route: 048
  6. SILDENAFIL CITRATE. [Concomitant]
     Active Substance: SILDENAFIL CITRATE
  7. DIGOXIN. [Concomitant]
     Active Substance: DIGOXIN
     Dosage: 1 ML, QD
     Route: 048
  8. PRILOSEC [Concomitant]
     Active Substance: OMEPRAZOLE MAGNESIUM
     Dosage: 2.6 ML, QD
     Route: 048
  9. TRACLEER [Suspect]
     Active Substance: BOSENTAN
     Dosage: 32 MG, QAM
     Route: 048
  10. ENALAPRIL [Concomitant]
     Active Substance: ENALAPRIL
     Dosage: 1 MG, BID

REACTIONS (3)
  - Hypoxia [Recovered/Resolved]
  - Oxygen saturation decreased [Recovered/Resolved]
  - Viral infection [Recovered/Resolved]

NARRATIVE: CASE EVENT DATE: 20191203
